FAERS Safety Report 13472678 (Version 1)
Quarter: 2017Q2

REPORT INFORMATION
  Report Type: Spontaneous
  Country: AR (occurrence: AR)
  Receive Date: 20170424
  Receipt Date: 20170424
  Transmission Date: 20170830
  Serious: Yes (Other)
  Sender: FDA-Public Use
  Company Number: AR-PFIZER INC-2017172136

PATIENT
  Age: 72 Year
  Sex: Female

DRUGS (1)
  1. IBRANCE [Suspect]
     Active Substance: PALBOCICLIB
     Indication: BREAST CANCER METASTATIC
     Dosage: 125 MG, CYCLIC (3/1 SCHEME)
     Dates: start: 20160901

REACTIONS (14)
  - Fatigue [Unknown]
  - Loss of personal independence in daily activities [Unknown]
  - Urticaria [Unknown]
  - Hypersensitivity [Unknown]
  - Condition aggravated [Unknown]
  - Nausea [Unknown]
  - Malaise [Unknown]
  - Dyspnoea [Unknown]
  - Poisoning [Unknown]
  - Anaemia [Unknown]
  - Hypersomnia [Unknown]
  - Loss of consciousness [Unknown]
  - Somnolence [Unknown]
  - Memory impairment [Unknown]
